FAERS Safety Report 23551603 (Version 1)
Quarter: 2024Q1

REPORT INFORMATION
  Report Type: Spontaneous
  Country: US (occurrence: US)
  Receive Date: 20240222
  Receipt Date: 20240222
  Transmission Date: 20240410
  Serious: No
  Sender: FDA-Public Use
  Company Number: US-STRIDES ARCOLAB LIMITED-2023SP002901

PATIENT
  Age: 17 Year
  Sex: Male

DRUGS (6)
  1. DOXORUBICIN [Suspect]
     Active Substance: DOXORUBICIN
     Indication: Chondrosarcoma metastatic
     Dosage: UNK;ALTERNATING EVERY 2-3WEEKS
     Route: 065
     Dates: start: 202104
  2. ETOPOSIDE [Suspect]
     Active Substance: ETOPOSIDE
     Indication: Chondrosarcoma metastatic
     Dosage: UNK;ALTERNATING EVERY 2-3WEEKS
     Route: 065
     Dates: start: 202104
  3. VINCRISTINE [Concomitant]
     Active Substance: VINCRISTINE
     Indication: Chondrosarcoma metastatic
     Dosage: UNK; ALTERNATING EVERY 2-3WEEKS
     Route: 065
     Dates: start: 202104
  4. CYCLOPHOSPHAMIDE [Concomitant]
     Active Substance: CYCLOPHOSPHAMIDE
     Indication: Chondrosarcoma metastatic
     Dosage: UNK;ALTERNATING EVERY 2-3WEEKS
     Route: 065
     Dates: start: 202104
  5. IFOSFAMIDE [Concomitant]
     Active Substance: IFOSFAMIDE
     Indication: Chondrosarcoma metastatic
     Dosage: UNK; ALTERNATING EVERY 2-3WEEKS
     Route: 065
     Dates: start: 202104
  6. PAZOPANIB [Concomitant]
     Active Substance: PAZOPANIB
     Indication: Chondrosarcoma metastatic
     Dosage: UNK; TWO CYCLES
     Route: 048

REACTIONS (1)
  - Off label use [Unknown]

NARRATIVE: CASE EVENT DATE: 20210401
